FAERS Safety Report 15984087 (Version 1)
Quarter: 2019Q1

REPORT INFORMATION
  Report Type: Spontaneous
  Country: US (occurrence: US)
  Receive Date: 20190219
  Receipt Date: 20190219
  Transmission Date: 20190418
  Serious: Yes (Other)
  Sender: FDA-Public Use
  Company Number: None

PATIENT
  Age: 43 Year
  Sex: Female
  Weight: 103.5 kg

DRUGS (4)
  1. LOSARTAN POTASSIUM TABLETS USP 25MG [Suspect]
     Active Substance: LOSARTAN POTASSIUM
     Indication: HYPERTENSION
     Dosage: ?          QUANTITY:90 TABLET(S);?
     Route: 001
     Dates: start: 20190113, end: 20190219
  2. VITAMIN D3 [Concomitant]
     Active Substance: CHOLECALCIFEROL
  3. FLUOXETINE [Concomitant]
     Active Substance: FLUOXETINE HYDROCHLORIDE
  4. VASCEPA [Concomitant]
     Active Substance: ICOSAPENT ETHYL

REACTIONS (3)
  - Photosensitivity reaction [None]
  - Recalled product [None]
  - Drug eruption [None]

NARRATIVE: CASE EVENT DATE: 20190125
